FAERS Safety Report 23553597 (Version 1)
Quarter: 2024Q1

REPORT INFORMATION
  Report Type: Spontaneous
  Country: US (occurrence: US)
  Receive Date: 20240222
  Receipt Date: 20240222
  Transmission Date: 20240410
  Serious: Yes (Other)
  Sender: FDA-Public Use
  Company Number: US-PFIZER INC-202400044415

PATIENT
  Age: 62 Year
  Sex: Female

DRUGS (3)
  1. XELJANZ XR [Suspect]
     Active Substance: TOFACITINIB CITRATE
     Dosage: 11 MG, DAILY
     Route: 048
     Dates: start: 202310
  2. FASENRA [Concomitant]
     Active Substance: BENRALIZUMAB
     Dosage: 30 MG/ML SYRINGE
  3. QVAR REDIHALER [Concomitant]
     Active Substance: BECLOMETHASONE DIPROPIONATE
     Dosage: 40 MCG HFA AEROBA

REACTIONS (2)
  - Sinusitis [Recovering/Resolving]
  - Oropharyngeal pain [Recovering/Resolving]
